FAERS Safety Report 7014977-1 (Version None)
Quarter: 2010Q3

REPORT INFORMATION
  Report Type: 
  Country: None (occurrence: None)
  Receive Date: 20100927
  Receipt Date: 20090908
  Transmission Date: 20110219
  Serious: No
  Sender: FDA-Public Use
  Company Number: US-ASTRAZENECA-2009SE12014

PATIENT
  Age: 64 Year
  Sex: Female

DRUGS (7)
  1. ARIMIDEX [Suspect]
     Indication: BREAST CANCER
     Route: 048
     Dates: start: 20090701
  2. HERCEPTIN [Concomitant]
     Indication: BREAST CANCER
  3. METOPROLOL SUCCINATE BY PAR [Concomitant]
     Indication: HYPERTENSION
  4. COZAAR [Concomitant]
     Indication: HYPERTENSION
  5. LANTUS [Concomitant]
     Indication: DIABETES MELLITUS
  6. LEVEMIR [Concomitant]
     Indication: DIABETES MELLITUS
  7. HUMALOG [Concomitant]
     Indication: DIABETES MELLITUS

REACTIONS (4)
  - HEADACHE [None]
  - HOT FLUSH [None]
  - HYPERTENSION [None]
  - RENAL IMPAIRMENT [None]
